FAERS Safety Report 12836952 (Version 1)
Quarter: 2016Q4

REPORT INFORMATION
  Report Type: Spontaneous
  Country: CH (occurrence: CH)
  Receive Date: 20161011
  Receipt Date: 20161011
  Transmission Date: 20170207
  Serious: Yes (Hospitalization, Other)
  Sender: FDA-Public Use
  Company Number: CH-PFIZER INC-2016466347

PATIENT
  Age: 76 Year
  Sex: Female

DRUGS (8)
  1. REMERON [Suspect]
     Active Substance: MIRTAZAPINE
     Dosage: 60 MG, UNK
  2. EFFEXOR XR [Suspect]
     Active Substance: VENLAFAXINE HYDROCHLORIDE
     Dosage: 300 MG, UNK
  3. LEXOTANIL [Suspect]
     Active Substance: BROMAZEPAM
     Dosage: 1.5 MG, 3X/DAY
  4. CO APROVEL [Concomitant]
     Active Substance: HYDROCHLOROTHIAZIDE\IRBESARTAN
     Dosage: UNK
  5. ZYPREXA [Suspect]
     Active Substance: OLANZAPINE
     Dosage: 2.5 MG, 1X/DAY, IN THE EVENING
  6. DEPAKINE [Suspect]
     Active Substance: VALPROATE SODIUM
     Dosage: 500MG, 2X/DAY
  7. DISTRANEURIN [Suspect]
     Active Substance: CLOMETHIAZOLE
     Dosage: 300 MG, UNK
  8. LITHIOFOR [Suspect]
     Active Substance: LITHIUM SULFATE
     Dosage: 660 MG, (.5 DF), 2X/DAY

REACTIONS (9)
  - Somnolence [Unknown]
  - Generalised anxiety disorder [Unknown]
  - Confusional state [Unknown]
  - Depression [Unknown]
  - Fatigue [Recovered/Resolved]
  - Fall [Unknown]
  - Diarrhoea [Recovered/Resolved]
  - Back pain [Recovering/Resolving]
  - Arrhythmia [Unknown]

NARRATIVE: CASE EVENT DATE: 2008
